FAERS Safety Report 10079071 (Version 1)
Quarter: 2014Q2

REPORT INFORMATION
  Report Type: Spontaneous
  Country: US (occurrence: None)
  Receive Date: 20140411
  Receipt Date: 20140411
  Transmission Date: 20141212
  Serious: Yes (Other)
  Sender: FDA-Public Use
  Company Number: None

PATIENT
  Age: 91 Year
  Sex: Female
  Weight: 47.63 kg

DRUGS (3)
  1. LEVOFLOXACIN [Suspect]
     Indication: INFLUENZA
     Route: 048
     Dates: start: 20131231, end: 20140104
  2. ATEMALOL [Concomitant]
  3. WARFARIN [Concomitant]

REACTIONS (4)
  - Pain [None]
  - Tendon pain [None]
  - Gait disturbance [None]
  - Peripheral swelling [None]
